FAERS Safety Report 8890736 (Version 2)
Quarter: 2013Q1

REPORT INFORMATION
  Report Type: Report from Study
  Country: US (occurrence: US)
  Receive Date: 20121107
  Receipt Date: 20130207
  Transmission Date: 20140127
  Serious: Yes (Other)
  Sender: FDA-Public Use
  Company Number: US-ROCHE-1151377

PATIENT
  Sex: Female

DRUGS (5)
  1. TRASTUZUMAB [Suspect]
     Indication: BREAST CANCER METASTATIC
     Route: 065
     Dates: start: 201208, end: 20121015
  2. TRASTUZUMAB [Suspect]
     Route: 042
     Dates: start: 2005
  3. CAPECITABINE [Suspect]
     Indication: BREAST CANCER METASTATIC
     Route: 048
     Dates: start: 201208
  4. CAPECITABINE [Suspect]
     Route: 048
     Dates: start: 20120829, end: 20130205
  5. TYKERB [Concomitant]
     Indication: BREAST CANCER METASTATIC
     Route: 048
     Dates: start: 201208

REACTIONS (2)
  - Cardiac disorder [Not Recovered/Not Resolved]
  - Disease progression [Not Recovered/Not Resolved]
